FAERS Safety Report 5268167-3 (Version None)
Quarter: 2007Q1

REPORT INFORMATION
  Report Type: 
  Country: None (occurrence: None)
  Receive Date: 20070316
  Receipt Date: 20070316
  Transmission Date: 20070707
  Serious: Yes (Death)
  Sender: FDA-Public Use
  Company Number: None

PATIENT
  Age: 61 Year
  Sex: Female
  Weight: 68.0396 kg

DRUGS (3)
  1. LUNESTA [Suspect]
     Dosage: ONE TABLET AT BEDTIME   ONE TABLET AT BED   PO
     Route: 048
     Dates: start: 20061205, end: 20061212
  2. CYMBALTA [Suspect]
     Dosage: ONE TABLET MORNING, ONE BEDTIME    PO
     Route: 048
     Dates: start: 20030604, end: 20061212
  3. XANAX [Concomitant]

REACTIONS (3)
  - COMPLETED SUICIDE [None]
  - DRUG INTERACTION [None]
  - GUN SHOT WOUND [None]
